FAERS Safety Report 6739395-2 (Version None)
Quarter: 2010Q2

REPORT INFORMATION
  Report Type: 
  Country: None (occurrence: None)
  Receive Date: 20100525
  Receipt Date: 20100512
  Transmission Date: 20101027
  Serious: Yes (Other)
  Sender: FDA-Public Use
  Company Number: US-BAYER-201014243NA

PATIENT
  Age: 28 Year
  Sex: Female
  Weight: 95 kg

DRUGS (29)
  1. YASMIN [Suspect]
     Indication: CONTRACEPTION
     Route: 048
     Dates: start: 20021201, end: 20051201
  2. YASMIN [Suspect]
     Route: 048
     Dates: start: 20071129, end: 20080210
  3. LEVOTHYROXINE SODIUM [Concomitant]
     Dates: start: 19980101
  4. PATANOL [Concomitant]
     Route: 047
     Dates: start: 20010101
  5. NASONEX [Concomitant]
     Dates: start: 20010101, end: 20040101
  6. RHINOCORT [Concomitant]
     Dates: start: 20050101
  7. VITAMIN C [Concomitant]
     Dosage: OCCASIONAL FOR COLD SEASON
  8. NSAID'S [Concomitant]
  9. ANTIBIOTICS [Concomitant]
     Dosage: SPORADIC
  10. THYROID MEDICATIONS [Concomitant]
     Dates: start: 19980901
  11. ACETAMINOPHEN [Concomitant]
     Dates: start: 20080206, end: 20080210
  12. LORATADINE [Concomitant]
  13. VICODIN [Concomitant]
     Route: 048
     Dates: start: 20080201
  14. MULTI-VITAMIN [Concomitant]
  15. FLEXERIL [Concomitant]
     Route: 065
     Dates: start: 20080201, end: 20080201
  16. ONDANSETRON [Concomitant]
     Route: 042
     Dates: start: 20080201, end: 20080201
  17. DIPHENHYDRAMINE [Concomitant]
     Route: 042
     Dates: start: 20080201, end: 20080201
  18. HYDROMORPHONE HCL [Concomitant]
     Route: 030
     Dates: start: 20080201, end: 20080201
  19. HYDROMORPHONE HCL [Concomitant]
     Route: 042
     Dates: start: 20080201, end: 20080201
  20. REGLAN [Concomitant]
     Route: 042
     Dates: start: 20080201, end: 20080201
  21. NALBUPHINE [Concomitant]
     Route: 042
     Dates: start: 20080201, end: 20080201
  22. NALOXONE [Concomitant]
     Route: 042
     Dates: start: 20080201, end: 20080201
  23. PERCOCET [Concomitant]
     Route: 048
     Dates: start: 20080201, end: 20080201
  24. COLACE [Concomitant]
     Route: 065
     Dates: start: 20080201, end: 20080201
  25. DEMEROL [Concomitant]
     Route: 065
     Dates: start: 20080201, end: 20080201
  26. DULCOLOX [Concomitant]
     Route: 054
     Dates: start: 20080201, end: 20080201
  27. SENOKOT [Concomitant]
     Route: 065
     Dates: start: 20080201, end: 20080201
  28. MAGNESIUM HYDROXIDE TAB [Concomitant]
     Dates: start: 20080201, end: 20080201
  29. MECLIZINE [Concomitant]
     Indication: DIZZINESS
     Route: 065
     Dates: start: 20080801

REACTIONS (16)
  - ANXIETY [None]
  - CEREBRAL THROMBOSIS [None]
  - CEREBRAL VENOUS THROMBOSIS [None]
  - COGNITIVE DISORDER [None]
  - DIZZINESS [None]
  - FEAR [None]
  - HAEMORRHAGIC TRANSFORMATION STROKE [None]
  - HEADACHE [None]
  - INJURY [None]
  - MUSCULOSKELETAL DISCOMFORT [None]
  - OEDEMA [None]
  - PANIC REACTION [None]
  - STRESS [None]
  - VERTIGO [None]
  - VISUAL IMPAIRMENT [None]
  - VOMITING [None]
